FAERS Safety Report 9292906 (Version 1)
Quarter: 2013Q2

REPORT INFORMATION
  Report Type: Spontaneous
  Country: US (occurrence: None)
  Receive Date: 20130515
  Receipt Date: 20130515
  Transmission Date: 20140414
  Serious: Yes (Hospitalization, Disabling)
  Sender: FDA-Public Use
  Company Number: None

PATIENT
  Age: 38 Year
  Sex: Female
  Weight: 90.72 kg

DRUGS (1)
  1. LEVAQUIN [Suspect]
     Indication: URINARY TRACT INFECTION
     Route: 048
     Dates: start: 20111120, end: 20111122

REACTIONS (12)
  - Dizziness [None]
  - Decreased appetite [None]
  - Delirium [None]
  - Dehydration [None]
  - Hallucination [None]
  - Dysarthria [None]
  - Heart rate increased [None]
  - Anxiety [None]
  - Paranoia [None]
  - Incoherent [None]
  - Mental disorder [None]
  - Osteoarthritis [None]
